FAERS Safety Report 6432960-1 (Version None)
Quarter: 2009Q4

REPORT INFORMATION
  Report Type: 
  Country: None (occurrence: None)
  Receive Date: 20091109
  Receipt Date: 20091027
  Transmission Date: 20100525
  Serious: Yes (Hospitalization)
  Sender: FDA-Public Use
  Company Number: US-ELI_LILLY_AND_COMPANY-US200910006925

PATIENT
  Sex: Female

DRUGS (16)
  1. FORTEO [Suspect]
     Dates: start: 20090801
  2. ADVAIR DISKUS 100/50 [Concomitant]
  3. ZAPONEX [Concomitant]
  4. IPRATROPIUM [Concomitant]
  5. ASCORBIC ACID [Concomitant]
  6. VITAMIN D [Concomitant]
  7. IRON [Concomitant]
  8. POTASSIUM CHLORIDE [Concomitant]
  9. LORATADINE [Concomitant]
  10. METOLAZONE [Concomitant]
  11. COUMADIN [Concomitant]
  12. PREDNISONE [Concomitant]
  13. OSCAL 500-D [Concomitant]
  14. MUCINEX [Concomitant]
  15. VERAPAMIL [Concomitant]
  16. ASPIRIN [Concomitant]

REACTIONS (2)
  - CHRONIC OBSTRUCTIVE PULMONARY DISEASE [None]
  - PNEUMONIA [None]
